FAERS Safety Report 9735420 (Version 1)
Quarter: 2013Q4

REPORT INFORMATION
  Report Type: Spontaneous
  Country: US (occurrence: US)
  Receive Date: 20131206
  Receipt Date: 20131206
  Transmission Date: 20140711
  Serious: Yes (Hospitalization)
  Sender: FDA-Public Use
  Company Number: US-009507513-1312USA001953

PATIENT
  Sex: Female

DRUGS (1)
  1. NUVARING [Suspect]
     Indication: CONTRACEPTION
     Dosage: UNK
     Route: 067
     Dates: start: 20091201, end: 20091217

REACTIONS (4)
  - Maternal exposure before pregnancy [Unknown]
  - Urine analysis abnormal [Unknown]
  - Glucose tolerance impaired [Unknown]
  - Pelvic discomfort [Unknown]
